FAERS Safety Report 4757577-6 (Version None)
Quarter: 2005Q3

REPORT INFORMATION
  Report Type: 
  Country: None (occurrence: None)
  Receive Date: 20050831
  Receipt Date: 20050825
  Transmission Date: 20060218
  Serious: Yes (Hospitalization)
  Sender: FDA-Public Use
  Company Number: PHBS2005JP12581

PATIENT

DRUGS (2)
  1. RITALIN [Suspect]
     Dosage: 20 MG/D
     Route: 065
  2. RISPERDAL [Concomitant]

REACTIONS (4)
  - ASTHENIA [None]
  - DELIRIUM [None]
  - DYSARTHRIA [None]
  - FRACTURE [None]
